FAERS Safety Report 9675500 (Version 3)
Quarter: 2013Q4

REPORT INFORMATION
  Report Type: Spontaneous
  Country: US (occurrence: US)
  Receive Date: 20131107
  Receipt Date: 20131222
  Transmission Date: 20140711
  Serious: No
  Sender: FDA-Public Use
  Company Number: US-009507513-1311USA000454

PATIENT
  Age: 12 Year
  Sex: Female

DRUGS (1)
  1. COPPERTONE ULTRAGUARD LOTION SPF 30 [Suspect]
     Indication: PRODUCT USED FOR UNKNOWN INDICATION
     Dosage: UNK, UNKNOWN
     Route: 061
     Dates: start: 20130729

REACTIONS (10)
  - Conjunctival haemorrhage [Recovering/Resolving]
  - Chemical burns of eye [Unknown]
  - Chemical eye injury [Recovered/Resolved]
  - Injury [Unknown]
  - Eye pain [Recovered/Resolved]
  - Dysgeusia [Unknown]
  - Hyperventilation [Unknown]
  - Cough [Unknown]
  - Accidental exposure to product [Unknown]
  - Product container issue [Unknown]
